FAERS Safety Report 17825428 (Version 1)
Quarter: 2020Q2

REPORT INFORMATION
  Report Type: Spontaneous
  Country: DK (occurrence: DK)
  Receive Date: 20200526
  Receipt Date: 20200526
  Transmission Date: 20200714
  Serious: Yes (Hospitalization)
  Sender: FDA-Public Use
  Company Number: PHHY2019DK085757

PATIENT
  Age: 27 Year
  Sex: Male
  Weight: 85 kg

DRUGS (1)
  1. PANCILLIN [Suspect]
     Active Substance: PENICILLIN V
     Indication: ERYSIPELAS
     Dosage: 3000000 IU, QD (STYRKE: 1000000 IE.)
     Route: 048
     Dates: start: 20190224, end: 20190228

REACTIONS (5)
  - Skin burning sensation [Recovered/Resolved]
  - C-reactive protein increased [Recovered/Resolved]
  - Pruritus [Recovered/Resolved]
  - Acute generalised exanthematous pustulosis [Recovered/Resolved]
  - Pyrexia [Recovered/Resolved]

NARRATIVE: CASE EVENT DATE: 20190225
